FAERS Safety Report 6925427-5 (Version None)
Quarter: 2010Q3

REPORT INFORMATION
  Report Type: 
  Country: None (occurrence: None)
  Receive Date: 20100816
  Receipt Date: 20100806
  Transmission Date: 20110219
  Serious: Yes (Hospitalization)
  Sender: FDA-Public Use
  Company Number: FR-PFIZER INC-2010098940

PATIENT
  Age: 89 Year
  Sex: Female

DRUGS (10)
  1. ALDACTONE [Suspect]
     Dosage: 25 MG, 1X/DAY
     Route: 048
     Dates: end: 20100422
  2. DIAMICRON [Suspect]
     Dosage: 30 MG, 3X/DAY
     Route: 048
     Dates: end: 20100422
  3. BISOPROLOL [Suspect]
     Dosage: 10 MG, 1X/DAY
     Route: 048
     Dates: end: 20100422
  4. BUMEX [Suspect]
     Dosage: 5 MG, 1X/DAY
     Route: 048
     Dates: end: 20100422
  5. PERINDOPRIL ERBUMINE [Suspect]
     Dosage: 5 MG, 1X/DAY
     Route: 048
     Dates: end: 20100422
  6. PREVISCAN [Concomitant]
     Dosage: 20 MG, UNK
     Route: 048
  7. HEMIGOXINE NATIVELLE [Concomitant]
     Dosage: 0.125 MG, 1X/DAY
     Route: 048
  8. CITALOPRAM HYDROBROMIDE [Concomitant]
  9. CRESTOR [Concomitant]
  10. FORLAX [Concomitant]

REACTIONS (3)
  - HYPOGLYCAEMIA [None]
  - HYPONATRAEMIA [None]
  - HYPOTENSION [None]
